FAERS Safety Report 20947585 (Version 4)
Quarter: 2022Q3

REPORT INFORMATION
  Report Type: Report from Study
  Country: BR (occurrence: BR)
  Receive Date: 20220611
  Receipt Date: 20220907
  Transmission Date: 20221027
  Serious: Yes (Other)
  Sender: FDA-Public Use
  Company Number: BR-JNJFOC-20220607711

PATIENT
  Age: 53 Year
  Sex: Female
  Weight: 62.5 kg

DRUGS (4)
  1. REMICADE [Suspect]
     Active Substance: INFLIXIMAB
     Indication: Crohn^s disease
     Dosage: 3 VIALS OF 100MG
     Route: 041
     Dates: start: 202101
  2. REMICADE [Suspect]
     Active Substance: INFLIXIMAB
     Dosage: 4 VIALS OF 100MG
     Route: 041
     Dates: start: 202111
  3. REMICADE [Suspect]
     Active Substance: INFLIXIMAB
     Route: 041
     Dates: start: 20220113
  4. HYDROCORTISONE [Concomitant]
     Active Substance: HYDROCORTISONE

REACTIONS (5)
  - Urinary tract infection [Recovering/Resolving]
  - Urinary retention [Unknown]
  - Skin fissures [Unknown]
  - Constipation [Unknown]
  - Influenza [Unknown]

NARRATIVE: CASE EVENT DATE: 20220510
